FAERS Safety Report 7122641-3 (Version None)
Quarter: 2010Q4

REPORT INFORMATION
  Report Type: 
  Country: None (occurrence: None)
  Receive Date: 20101124
  Receipt Date: 20101115
  Transmission Date: 20110411
  Serious: Yes (Hospitalization, Other)
  Sender: FDA-Public Use
  Company Number: US-ALEXION PHARMACEUTICALS INC.-A201001030

PATIENT
  Sex: Female

DRUGS (38)
  1. SOLIRIS [Suspect]
     Indication: PAROXYSMAL NOCTURNAL HAEMOGLOBINURIA
     Dosage: 900 MG, Q2W
     Route: 042
     Dates: start: 20070801
  2. LIDOCAINE HCL                      /00033402/ [Concomitant]
     Dosage: UNK
     Route: 061
  3. FLUTICASONE PROPIONATE [Concomitant]
     Dosage: 2 SPRAYS IN EACH NOSTRIL QD
     Route: 045
  4. LIDOCAINE [Concomitant]
     Dosage: UNK
     Route: 062
  5. VITAMIN C                          /00008001/ [Concomitant]
     Dosage: 500 MG, BID
     Route: 048
  6. PREMARIN [Concomitant]
     Route: 067
  7. LAMICTAL [Concomitant]
     Dosage: 50 MG, QD
     Route: 048
  8. VITAMIN B12                        /00056201/ [Concomitant]
     Dosage: 1 TAB, QD
     Route: 048
  9. BUSPIRONE HYDROCHLORIDE [Concomitant]
     Dosage: 20 MG, QD
     Route: 048
  10. CLARITIN                           /00917501/ [Concomitant]
     Dosage: 1 CAPSULE, PRN
     Route: 048
  11. AMITRIPTYLINE HYDROCHLORIDE [Concomitant]
     Dosage: 10 MG, QD
     Route: 048
  12. ASPIRIN [Concomitant]
     Dosage: 81 MG, QOD
     Route: 048
  13. FERROUS GLUCONATE [Concomitant]
     Dosage: 325 MG, TID
     Route: 048
  14. FOLIC ACID [Concomitant]
     Dosage: 2 MG, QD
     Route: 048
  15. AQUAPHOR                           /00298701/ [Concomitant]
     Dosage: APPLY SPARINGLY, QD
     Route: 061
  16. CALCIUM CITRATE W/VITAMIN D NOS [Concomitant]
     Dosage: 2 TABS, BID
     Route: 048
  17. PROMETHAZINE HYDROCHLORIDE [Concomitant]
     Dosage: 25 MG, Q4-6 HRS PRN
     Route: 048
  18. HYDROXYZINE HCL [Concomitant]
     Dosage: 25 MG, HS PRN
     Route: 048
  19. SENNA PLUS                         /00142201/ [Concomitant]
     Dosage: 1 TAB, DAILY PRN
     Route: 048
  20. HYDROCORTISONE [Concomitant]
     Dosage: UNK
     Route: 061
  21. CYMBALTA [Concomitant]
     Dosage: 90 MG, QD
     Route: 048
  22. NITROFURANTOIN [Concomitant]
     Dosage: 100 MG, QD
     Route: 048
  23. ACIDOPHILUS [Concomitant]
     Dosage: 1 CAPSULE, QD
     Route: 048
  24. ACETAMINOPHEN [Concomitant]
     Dosage: 1300 MG, TID
     Route: 048
  25. VESICARE [Concomitant]
     Dosage: 5 MG, QD
     Route: 048
  26. POTASSIUM CITRATE [Concomitant]
     Dosage: 1080 MG, BID
     Route: 048
  27. LOVAZA [Concomitant]
     Dosage: 4 G, QD
     Route: 048
  28. GABAPENTIN [Concomitant]
     Dosage: 900 MG, QD
     Route: 048
  29. LISINOPRIL [Concomitant]
     Dosage: UNK
     Route: 048
     Dates: end: 20101001
  30. NABUMETONE [Concomitant]
     Dosage: 1500 MG, QD
     Route: 048
  31. HYDROCORTISONE [Concomitant]
     Dosage: 20 MG, QAM/ 10MG, Q 2PM
     Route: 048
  32. ENOXAPARIN SODIUM [Concomitant]
     Dosage: UNK, QD
     Route: 058
  33. MICONAZOLE [Concomitant]
     Indication: FUNGAL SKIN INFECTION
     Dosage: UNK
  34. SERTRALINE HYDROCHLORIDE [Concomitant]
     Dosage: 50 MG, QD
     Route: 048
  35. MULTIVITAMINS PLUS IRON [Concomitant]
     Dosage: 1 TAB, QD
     Route: 048
  36. VITAMIN B6 [Concomitant]
     Dosage: 50 MG, QD
     Route: 048
  37. OMEPRAZOLE [Concomitant]
     Dosage: 20 MG, QD
     Route: 048
  38. DOCUSATE SODIUM [Concomitant]
     Dosage: 100 MG, QD
     Route: 048

REACTIONS (9)
  - CARDIOMYOPATHY [None]
  - DEPRESSION [None]
  - DYSPNOEA [None]
  - FATIGUE [None]
  - HAEMOLYTIC ANAEMIA [None]
  - NEPHROLITHIASIS [None]
  - PYELONEPHRITIS [None]
  - PYREXIA [None]
  - RENAL FAILURE ACUTE [None]
